FAERS Safety Report 24173399 (Version 2)
Quarter: 2024Q3

REPORT INFORMATION
  Report Type: Spontaneous
  Country: US (occurrence: US)
  Receive Date: 20240805
  Receipt Date: 20240807
  Transmission Date: 20241017
  Serious: No
  Sender: ELI LILLY AND CO
  Company Number: US-ELI_LILLY_AND_COMPANY-US202408001897

PATIENT
  Age: 73 Year
  Sex: Male

DRUGS (1)
  1. HUMALOG KWIKPEN [Suspect]
     Active Substance: INSULIN LISPRO
     Indication: Type 2 diabetes mellitus
     Dosage: 300 U, UNKNOWN
     Route: 058

REACTIONS (3)
  - Wrong technique in product usage process [Unknown]
  - Blood glucose decreased [Unknown]
  - Insulin resistance [Unknown]
